FAERS Safety Report 5362005-6 (Version None)
Quarter: 2007Q2

REPORT INFORMATION
  Report Type: 
  Country: None (occurrence: None)
  Receive Date: 20070619
  Receipt Date: 20070611
  Transmission Date: 20071010
  Serious: Yes (Hospitalization)
  Sender: FDA-Public Use
  Company Number: DE-BRISTOL-MYERS SQUIBB COMPANY-13813159

PATIENT
  Age: 38 Year
  Sex: Male
  Weight: 75 kg

DRUGS (9)
  1. PRAVASTATIN SODIUM [Suspect]
  2. CYCLOSPORINE [Concomitant]
  3. EVEROLIMUS [Concomitant]
  4. ACETYLSALICYLIC ACID SRT [Concomitant]
  5. THEOPHYLLINE [Concomitant]
  6. PANTOPRAZOLE SODIUM [Concomitant]
  7. TORSEMIDE [Concomitant]
  8. DILTIAZEM HCL [Concomitant]
  9. CO-TRIMOXAZOLE [Concomitant]

REACTIONS (2)
  - CARDIAC FAILURE CONGESTIVE [None]
  - SARCOIDOSIS [None]
